FAERS Safety Report 8839758 (Version 2)
Quarter: 2012Q4

REPORT INFORMATION
  Report Type: Report from Study
  Country: JP (occurrence: JP)
  Receive Date: 20121015
  Receipt Date: 20121126
  Transmission Date: 20130627
  Serious: Yes (Hospitalization)
  Sender: FDA-Public Use
  Company Number: JP-VERTEX PHARMACEUTICAL INC.-AE-2012-009498

PATIENT
  Age: 69 Year
  Sex: Female

DRUGS (12)
  1. VX-950 (TELAPREVIR) [Suspect]
     Indication: HEPATITIS C
     Dosage: 1500 mg, qd
     Route: 048
     Dates: start: 20120322, end: 20120326
  2. VX-950 (TELAPREVIR) [Suspect]
     Dosage: 1000 mg, qd
     Route: 048
     Dates: start: 20120327, end: 20120501
  3. VX-950 (TELAPREVIR) [Suspect]
     Dosage: 500 mg, qd
     Route: 048
     Dates: start: 20120502, end: 20120516
  4. VX-950 (TELAPREVIR) [Suspect]
     Dosage: UNK
     Dates: start: 20120517, end: 20120523
  5. VX-950 (TELAPREVIR) [Suspect]
     Dosage: 500 mg, qd
     Route: 048
     Dates: start: 20120524, end: 20120605
  6. RIBAVIRIN [Concomitant]
     Indication: CHRONIC HEPATITIS C
     Route: 048
     Dates: start: 20120322, end: 20120501
  7. RIBAVIRIN [Concomitant]
     Dosage: 200 mg, UNK
     Route: 048
     Dates: start: 20120502, end: 20120605
  8. PEGINTERFERON ALFA-2B [Concomitant]
     Indication: CHRONIC HEPATITIS C
     Route: 058
     Dates: start: 20120322, end: 20120530
  9. JUVELA N [Concomitant]
     Route: 048
  10. CINAL [Concomitant]
     Route: 048
  11. URSO                               /00465701/ [Concomitant]
     Dosage: 900 mg, UNK
     Route: 048
     Dates: start: 20120627
  12. NEOPHAGEN                          /00467204/ [Concomitant]
     Dosage: 60 ml, UNK
     Route: 058
     Dates: start: 20120627

REACTIONS (1)
  - Dizziness [Recovered/Resolved]
